FAERS Safety Report 8217555-1 (Version None)
Quarter: 2012Q1

REPORT INFORMATION
  Report Type: 
  Country: None (occurrence: None)
  Receive Date: 20120314
  Receipt Date: 20120305
  Transmission Date: 20120608
  Serious: Yes (Life-Threatening)
  Sender: FDA-Public Use
  Company Number: AUR-APL-2012-01323

PATIENT
  Age: 54 Year
  Sex: Male

DRUGS (4)
  1. NORVASC [Concomitant]
  2. COMBISARTAIN (CO-DIOVAN) [Concomitant]
  3. ZOCOR [Concomitant]
  4. AMOXICILLIN [Suspect]
     Indication: TOOTH ABSCESS
     Dosage: (2 GM, 1 D), ORAL
     Route: 048
     Dates: start: 20111207, end: 20111207

REACTIONS (6)
  - HYPOTENSION [None]
  - RASH GENERALISED [None]
  - BLOOD PRESSURE DECREASED [None]
  - ABDOMINAL PAIN [None]
  - LOSS OF CONSCIOUSNESS [None]
  - ABDOMINAL RIGIDITY [None]
